FAERS Safety Report 20794036 (Version 1)
Quarter: 2022Q2

REPORT INFORMATION
  Report Type: Spontaneous
  Country: US (occurrence: US)
  Receive Date: 20220506
  Receipt Date: 20220506
  Transmission Date: 20220721
  Serious: Yes (Other)
  Sender: FDA-Public Use
  Company Number: US-SUN PHARMACEUTICAL INDUSTRIES LTD-2022R1-335370

PATIENT
  Age: 14 Year
  Sex: Female

DRUGS (3)
  1. CAPECITABINE [Suspect]
     Active Substance: CAPECITABINE
     Indication: Chemotherapy
     Dosage: UNK (6 CYCLES)
     Route: 065
  2. NIVOLUMAB [Concomitant]
     Active Substance: NIVOLUMAB
     Indication: Chemotherapy
     Dosage: UNK (6 CYCLES)
     Route: 065
  3. pegylated interferon-alpha [Concomitant]
     Indication: Chemotherapy
     Dosage: UNK (6 CYCLES)
     Route: 065

REACTIONS (1)
  - Diabetic ketoacidosis [Recovered/Resolved]
